FAERS Safety Report 7491830-0 (Version None)
Quarter: 2011Q2

REPORT INFORMATION
  Report Type: 
  Country: None (occurrence: None)
  Receive Date: 20110519
  Receipt Date: 20110513
  Transmission Date: 20111010
  Serious: Yes (Other)
  Sender: FDA-Public Use
  Company Number: US-AMGEN-USASP2011022850

PATIENT
  Age: 22 Year
  Sex: Female

DRUGS (3)
  1. NPLATE [Suspect]
     Dates: start: 20100212, end: 20100227
  2. NPLATE [Suspect]
     Indication: IDIOPATHIC THROMBOCYTOPENIC PURPURA
     Dosage: 70 A?G, UNK
     Dates: start: 20100212, end: 20100227
  3. CORTICOSTEROIDS [Concomitant]

REACTIONS (2)
  - DRUG INEFFECTIVE [None]
  - THROMBOCYTOPENIA [None]
